FAERS Safety Report 20647684 (Version 6)
Quarter: 2022Q2

REPORT INFORMATION
  Report Type: Spontaneous
  Country: JP (occurrence: JP)
  Receive Date: 20220329
  Receipt Date: 20220622
  Transmission Date: 20220720
  Serious: Yes (Death, Life-Threatening, Hospitalization, Other)
  Sender: FDA-Public Use
  Company Number: JP-MSD-M2022-12180

PATIENT
  Age: 87 Year
  Sex: Male
  Weight: 56 kg

DRUGS (6)
  1. MOLNUPIRAVIR [Suspect]
     Active Substance: MOLNUPIRAVIR
     Indication: COVID-19 treatment
     Dosage: 800 MILLIGRAM, BID
     Route: 048
     Dates: start: 20220216, end: 20220221
  2. TRULICITY [Concomitant]
     Active Substance: DULAGLUTIDE
     Indication: Diabetes mellitus
     Dosage: 0.75 MILLIGRAM, QW
     Route: 058
     Dates: start: 20200907, end: 20220217
  3. CILOSTAZOL [Concomitant]
     Active Substance: CILOSTAZOL
     Indication: Prophylaxis
     Dosage: 100 MILLIGRAM, BID
     Route: 048
     Dates: start: 20200907, end: 20220224
  4. LANSOPRAZOLE [Concomitant]
     Active Substance: LANSOPRAZOLE
     Dosage: 15 MILLIGRAM, QD
     Route: 048
     Dates: start: 20200907, end: 20220224
  5. SILODOSIN OD [Concomitant]
     Indication: Benign prostatic hyperplasia
     Dosage: 4 MILLIGRAM, BID
     Route: 048
     Dates: start: 20200907, end: 20220224
  6. DIETARY SUPPLEMENT\PROBIOTICS [Concomitant]
     Active Substance: DIETARY SUPPLEMENT\PROBIOTICS
     Dosage: 3 DOSAGE FORM, TID
     Route: 048
     Dates: start: 20200907, end: 20220224

REACTIONS (2)
  - Respiratory failure [Fatal]
  - Dysphagia [Unknown]

NARRATIVE: CASE EVENT DATE: 20220219
